FAERS Safety Report 11236188 (Version 5)
Quarter: 2016Q3

REPORT INFORMATION
  Report Type: Report from Study
  Country: US (occurrence: US)
  Receive Date: 20150702
  Receipt Date: 20160809
  Transmission Date: 20161109
  Serious: Yes (Hospitalization)
  Sender: FDA-Public Use
  Company Number: US-ACTELION-A-US2015-115612

PATIENT
  Age: 78 Year
  Sex: Female

DRUGS (5)
  1. OPSUMIT [Suspect]
     Active Substance: MACITENTAN
     Indication: PULMONARY ARTERIAL HYPERTENSION
     Dosage: 10 MG, QD
     Route: 048
     Dates: start: 20140514
  2. TYVASO [Concomitant]
     Active Substance: TREPROSTINIL
  3. COUMADIN [Concomitant]
     Active Substance: WARFARIN SODIUM
  4. DILTIAZEM. [Concomitant]
     Active Substance: DILTIAZEM
  5. FUROSEMIDE. [Concomitant]
     Active Substance: FUROSEMIDE
     Dosage: 40 MG, UNK

REACTIONS (11)
  - Oedema [Unknown]
  - Swelling [Unknown]
  - Cerebrovascular accident [Unknown]
  - Cellulitis [Unknown]
  - Cardiac failure congestive [Unknown]
  - Thrombotic stroke [Unknown]
  - Speech disorder [Unknown]
  - Scratch [Recovered/Resolved]
  - Cardiac pacemaker battery replacement [Unknown]
  - Oedema peripheral [Unknown]
  - Syncope [Unknown]

NARRATIVE: CASE EVENT DATE: 20150324
